FAERS Safety Report 23954960 (Version 2)
Quarter: 2024Q3

REPORT INFORMATION
  Report Type: Spontaneous
  Country: CA (occurrence: CA)
  Receive Date: 20240610
  Receipt Date: 20240731
  Transmission Date: 20241017
  Serious: Yes (Other)
  Sender: CELLTRION
  Company Number: CA-PFIZER INC-202400039630

PATIENT

DRUGS (8)
  1. INFLECTRA [Suspect]
     Active Substance: INFLIXIMAB-DYYB
     Indication: Colitis ulcerative
     Dosage: 400 MG, AT WEEK 0, 2 AND 6 THEN Q (EVERY) 8 WEEKS
     Route: 042
     Dates: start: 20240226
  2. INFLECTRA [Suspect]
     Active Substance: INFLIXIMAB-DYYB
     Dosage: 400 MG, AT WEEK 0, 2 AND 6 THEN Q (EVERY) 8 WEEKS
     Route: 042
     Dates: start: 20240227
  3. INFLECTRA [Suspect]
     Active Substance: INFLIXIMAB-DYYB
     Dosage: 400 MG, AT WEEK 0, 2 AND 6 THEN Q (EVERY) 8 WEEKS, WEEK 2 INFUSION
     Route: 042
     Dates: start: 20240311
  4. INFLECTRA [Suspect]
     Active Substance: INFLIXIMAB-DYYB
     Dosage: 400 MG, AT WEEK 0, 2 AND 6 THEN Q (EVERY) 8 WEEKS (400MG AFTER 3 WEEKS AND 6 DAYS), WEEK 6 INFUSION
     Route: 042
     Dates: start: 20240408
  5. INFLECTRA [Suspect]
     Active Substance: INFLIXIMAB-DYYB
     Dosage: 400 MG AFTER 8 WEEKS
     Route: 042
     Dates: start: 20240603
  6. MESALAMINE [Concomitant]
     Active Substance: MESALAMINE
     Dosage: UNK
  7. MORPHINE [Concomitant]
     Active Substance: MORPHINE
     Dosage: UNK
  8. PREDNISONE [Concomitant]
     Active Substance: PREDNISONE
     Dosage: UNK

REACTIONS (7)
  - Insomnia [Recovering/Resolving]
  - Condition aggravated [Recovering/Resolving]
  - Insomnia [Recovered/Resolved]
  - Infusion site swelling [Recovered/Resolved]
  - Off label use [Unknown]
  - Off label use [Unknown]
  - Intentional product use issue [Unknown]

NARRATIVE: CASE EVENT DATE: 20240101
